FAERS Safety Report 24572949 (Version 1)
Quarter: 2024Q4

REPORT INFORMATION
  Report Type: Spontaneous
  Country: JP (occurrence: JP)
  Receive Date: 20241101
  Receipt Date: 20241101
  Transmission Date: 20250115
  Serious: Yes (Death, Hospitalization, Other)
  Sender: MERCK
  Company Number: JP-MSD-2410JPN002883J

PATIENT
  Age: 77 Year
  Sex: Male
  Weight: 52 kg

DRUGS (6)
  1. KEYTRUDA [Suspect]
     Active Substance: PEMBROLIZUMAB
     Indication: Renal cell carcinoma
     Dosage: 200 MILLIGRAM, Q3W
     Route: 041
     Dates: start: 20240903, end: 20240903
  2. CANDESARTAN CILEXETIL [Concomitant]
     Active Substance: CANDESARTAN CILEXETIL
     Dosage: UNK MILLIGRAM
     Route: 048
  3. BELSOMRA [Concomitant]
     Active Substance: SUVOREXANT
     Dosage: UNK MILLIGRAM
     Route: 048
  4. FERRIC CITRATE ANHYDROUS [Concomitant]
     Active Substance: FERRIC CITRATE ANHYDROUS
     Dosage: UNK MILLIGRAM
     Route: 048
  5. RIKKUNSHITO [ATRACTYLODES SPP. RHIZOME;CITRUS X AURANTIUM PEEL;GLYCYRR [Concomitant]
     Dosage: UNK GRAM
     Route: 048
  6. S.M. [CALCIUM CARBONATE;CINNAMOMUM VERUM POWDER;COPTIS TRIFOLIA;DIASTA [Concomitant]
     Dosage: UNK GRAM
     Route: 065

REACTIONS (3)
  - Myocarditis [Fatal]
  - Myasthenia gravis [Fatal]
  - Myositis [Fatal]

NARRATIVE: CASE EVENT DATE: 20240920
